FAERS Safety Report 13932404 (Version 1)
Quarter: 2017Q3

REPORT INFORMATION
  Report Type: Spontaneous
  Country: US (occurrence: US)
  Receive Date: 20170904
  Receipt Date: 20170904
  Transmission Date: 20171127
  Serious: Yes (Hospitalization)
  Sender: FDA-Public Use
  Company Number: US-ACCORD-057844

PATIENT
  Age: 60 Year
  Sex: Male

DRUGS (4)
  1. CLONAZEPAM. [Suspect]
     Active Substance: CLONAZEPAM
     Indication: MAJOR DEPRESSION
     Dosage: 2 MG TID
  2. FLUOXETINE [Concomitant]
     Active Substance: FLUOXETINE HYDROCHLORIDE
     Indication: MAJOR DEPRESSION
     Dosage: 80 MG Q A.M.
  3. PRAZOSIN. [Concomitant]
     Active Substance: PRAZOSIN
     Indication: MAJOR DEPRESSION
     Dosage: 4 MG QHS
  4. QUETIAPINE/QUETIAPINE FUMARATE [Concomitant]
     Indication: MAJOR DEPRESSION
     Dosage: 600 MG QHS

REACTIONS (2)
  - Catatonia [Recovered/Resolved]
  - Withdrawal syndrome [Unknown]
